FAERS Safety Report 8060127-2 (Version None)
Quarter: 2012Q1

REPORT INFORMATION
  Report Type: 
  Country: None (occurrence: None)
  Receive Date: 20120120
  Receipt Date: 20120119
  Transmission Date: 20120608
  Serious: Yes (Death, Hospitalization)
  Sender: FDA-Public Use
  Company Number: JP-ABBOTT-11P-087-0715310-00

PATIENT
  Sex: Male
  Weight: 43.4 kg

DRUGS (3)
  1. HUMIRA [Suspect]
     Dosage: 40MG, ONCE PER 2 WEEKS
     Dates: start: 20061213, end: 20100216
  2. BEPOTASTINE BESILATE [Concomitant]
     Indication: RHINITIS ALLERGIC
     Dosage: 20MG DAILY
     Route: 048
     Dates: start: 20100321, end: 20100421
  3. HUMIRA [Suspect]
     Indication: PSORIASIS
     Dosage: 80MG, ONCE PER 2 WEEKS
     Route: 058
     Dates: start: 20060628, end: 20061213

REACTIONS (8)
  - METASTASES TO PERITONEUM [None]
  - LUNG NEOPLASM [None]
  - LUNG NEOPLASM MALIGNANT [None]
  - PULMONARY TUBERCULOSIS [None]
  - DIVERTICULUM INTESTINAL [None]
  - EMPHYSEMA [None]
  - METASTATIC GASTRIC CANCER [None]
  - BACTERIAL TEST POSITIVE [None]
